FAERS Safety Report 7305987-5 (Version None)
Quarter: 2011Q1

REPORT INFORMATION
  Report Type: 
  Country: None (occurrence: None)
  Receive Date: 20110209
  Receipt Date: 20110124
  Transmission Date: 20110831
  Serious: Yes (Death, Other)
  Sender: FDA-Public Use
  Company Number: 2011MA000621

PATIENT
  Age: 60 Year
  Sex: Female

DRUGS (1)
  1. PACLITAXEL [Suspect]
     Dosage: IV
     Route: 042

REACTIONS (5)
  - DRUG HYPERSENSITIVITY [None]
  - ASCITES [None]
  - FEBRILE NEUTROPENIA [None]
  - ENDOMETRIAL CANCER [None]
  - NEOPLASM MALIGNANT [None]
